FAERS Safety Report 7332951-2 (Version None)
Quarter: 2011Q1

REPORT INFORMATION
  Report Type: 
  Country: None (occurrence: None)
  Receive Date: 20110228
  Receipt Date: 20110228
  Transmission Date: 20110831
  Serious: Yes (Other)
  Sender: FDA-Public Use
  Company Number: None

PATIENT
  Age: 37 Year
  Sex: Male
  Weight: 120.2032 kg

DRUGS (1)
  1. OXYCONTIN [Suspect]
     Indication: BACK PAIN
     Dosage: 30 MG 2 PER DAY PO
     Route: 048
     Dates: start: 20110101, end: 20110226

REACTIONS (4)
  - DRUG INEFFECTIVE [None]
  - PRODUCT FORMULATION ISSUE [None]
  - HEADACHE [None]
  - NAUSEA [None]
